FAERS Safety Report 18102425 (Version 3)
Quarter: 2020Q3

REPORT INFORMATION
  Report Type: Spontaneous
  Country: PL (occurrence: PL)
  Receive Date: 20200803
  Receipt Date: 20200825
  Transmission Date: 20201103
  Serious: Yes (Hospitalization)
  Sender: FDA-Public Use
  Company Number: PL-BAUSCH-BL-2020-021439

PATIENT
  Age: 61 Year
  Sex: Female
  Weight: 91 kg

DRUGS (5)
  1. TRESIBA [Suspect]
     Active Substance: INSULIN DEGLUDEC
     Indication: TYPE 2 DIABETES MELLITUS
     Dosage: DOSE WAS GRADUALLY DECREASED DURING HOSPITALISATION UNTIL WITHDRAWAL
     Route: 058
  2. NOVORAPID [Suspect]
     Active Substance: INSULIN ASPART
     Indication: TYPE 2 DIABETES MELLITUS
     Dosage: GRADUALLY DECREASED UNTIL WITHDRAWAL
     Route: 058
  3. NOVORAPID [Suspect]
     Active Substance: INSULIN ASPART
     Dosage: BEGINING DOSES 10?6?8 U
     Route: 058
  4. METFORMIN [Suspect]
     Active Substance: METFORMIN HYDROCHLORIDE
     Indication: TYPE 2 DIABETES MELLITUS
     Route: 048
  5. TRESIBA [Suspect]
     Active Substance: INSULIN DEGLUDEC
     Route: 058

REACTIONS (2)
  - Glycosylated haemoglobin increased [Recovered/Resolved]
  - Diabetic metabolic decompensation [Recovered/Resolved]
